FAERS Safety Report 7283084-5 (Version None)
Quarter: 2011Q1

REPORT INFORMATION
  Report Type: 
  Country: None (occurrence: None)
  Receive Date: 20110209
  Receipt Date: 20110131
  Transmission Date: 20110831
  Serious: Yes (Other)
  Sender: FDA-Public Use
  Company Number: DE-ROCHE-743495

PATIENT
  Sex: Female
  Weight: 51 kg

DRUGS (3)
  1. BONIVA [Suspect]
     Indication: OSTEOPOROSIS
     Route: 065
     Dates: start: 20060101, end: 20100701
  2. LISINOPRIL [Concomitant]
     Indication: HYPERTENSION
     Dosage: STRENGTH: 20
  3. BISOPROLOL [Concomitant]
     Indication: HYPERTENSION

REACTIONS (2)
  - OSTEONECROSIS OF JAW [None]
  - HUMERUS FRACTURE [None]
